FAERS Safety Report 19483711 (Version 1)
Quarter: 2021Q3

REPORT INFORMATION
  Report Type: Spontaneous
  Country: US (occurrence: US)
  Receive Date: 20210701
  Receipt Date: 20210701
  Transmission Date: 20211014
  Serious: No
  Sender: FDA-Public Use
  Company Number: US-ROCHE-2810753

PATIENT
  Sex: Female

DRUGS (15)
  1. CLONAZEPAM. [Suspect]
     Active Substance: CLONAZEPAM
     Indication: PRODUCT USED FOR UNKNOWN INDICATION
     Route: 065
  2. BACLOFEN. [Concomitant]
     Active Substance: BACLOFEN
     Dosage: 20 MG TABLET 2 TABLET BY MOUTH 3 TIMES A DAY
  3. BUSPAR [Concomitant]
     Active Substance: BUSPIRONE HYDROCHLORIDE
     Dosage: 20 MG TWICE A DAY
  4. ONDANSETRON [Concomitant]
     Active Substance: ONDANSETRON
     Dosage: 8 MG 1 TAB BY MOUTH EVERY 4 HRS AS NEEDED
  5. SITAGLIPTINE [Concomitant]
     Active Substance: SITAGLIPTIN
     Dosage: 100 MG TAB ONCE AS NEEDED
  6. ATENOLOL. [Concomitant]
     Active Substance: ATENOLOL
     Dosage: 50 MG ONCE DAILY
  7. FAMOTIDINE. [Concomitant]
     Active Substance: FAMOTIDINE
     Dosage: 20 MG TB 2 TIMES A DAY
  8. AMITRIPTYLINE [Concomitant]
     Active Substance: AMITRIPTYLINE
     Dosage: 100 MG NIGHTLY
  9. LACTOBACILLUS [Concomitant]
     Active Substance: LACTOBACILLUS ACIDOPHILUS
  10. LEVOTHYROXINE. [Concomitant]
     Active Substance: LEVOTHYROXINE
     Dosage: 50 MCG 1 TAB DAILY
  11. VALACICLOVIR [Concomitant]
     Active Substance: VALACYCLOVIR HYDROCHLORIDE
     Dosage: 500 MG TAB 1 TAB NIGHTLY
  12. COVID?19 VACCINE NOS. [Suspect]
     Active Substance: COVID-19 VACCINE NOS
     Indication: PRODUCT USED FOR UNKNOWN INDICATION
     Route: 065
  13. GABAPENTIN. [Concomitant]
     Active Substance: GABAPENTIN
     Dosage: 600 MG 2 TAB, 3 TIMES A DAY
  14. ZOLPIDEM [Concomitant]
     Active Substance: ZOLPIDEM TARTRATE
     Dosage: 100 MG TAB NIGHTLY AS NEEDED
  15. AMLODIPINE [Concomitant]
     Active Substance: AMLODIPINE BESYLATE
     Dosage: 100 MG ONCE DAILY

REACTIONS (3)
  - Oedema peripheral [Unknown]
  - Hair growth abnormal [Unknown]
  - Swelling [Unknown]
